FAERS Safety Report 8489628-X (Version None)
Quarter: 2012Q2

REPORT INFORMATION
  Report Type: 
  Country: None (occurrence: None)
  Receive Date: 20120626
  Receipt Date: 20120620
  Transmission Date: 20120825
  Serious: Yes (Life-Threatening, Hospitalization)
  Sender: FDA-Public Use
  Company Number: 2012SP034464

PATIENT
  Age: 37 Year
  Sex: Female

DRUGS (9)
  1. RAMIPRIL [Concomitant]
  2. MIRTAZAPINE [Concomitant]
  3. CITALOPRAM HYDROBROMIDE [Concomitant]
  4. METOCLOPRAMIDE [Concomitant]
  5. LERCANIDIPINE [Concomitant]
  6. PEG-INTRON [Suspect]
     Indication: HEPATITIS C
     Dates: start: 20120202, end: 20120618
  7. COPEGUS [Suspect]
     Indication: HEPATITIS C
     Dates: start: 20120202, end: 20120618
  8. HALOPERIDOL [Concomitant]
  9. VICTRELIS [Suspect]
     Indication: HEPATITIS C
     Dates: start: 20120202, end: 20120618

REACTIONS (2)
  - RENAL FAILURE [None]
  - HEPATIC FAILURE [None]
